FAERS Safety Report 7480426-2 (Version None)
Quarter: 2011Q2

REPORT INFORMATION
  Report Type: 
  Country: None (occurrence: None)
  Receive Date: 20110506
  Receipt Date: 20110428
  Transmission Date: 20111010
  Serious: Yes (Hospitalization)
  Sender: FDA-Public Use
  Company Number: 2011SP019069

PATIENT
  Age: 84 Year
  Sex: Female

DRUGS (10)
  1. LEVOTHYROXINE SODIUM [Concomitant]
  2. MINISINTROM [Concomitant]
  3. ZOPICLONE [Concomitant]
  4. ACETAMINOPHEN [Concomitant]
  5. RABEPRAZOLE SODIUM [Concomitant]
  6. TRINIPATCH [Concomitant]
  7. AMIODARONE HCL [Concomitant]
  8. MIRTAZAPINE [Suspect]
     Indication: PRODUCT USED FOR UNKNOWN INDICATION
     Dosage: ;PO
     Route: 048
     Dates: end: 20101217
  9. GALANTAMINE HYDROBROMIDE [Concomitant]
  10. MICARDIS HCT [Concomitant]

REACTIONS (11)
  - CEREBRAL ATROPHY [None]
  - HYPONATRAEMIA [None]
  - FALL [None]
  - PALLOR [None]
  - PSYCHOMOTOR RETARDATION [None]
  - BUNDLE BRANCH BLOCK RIGHT [None]
  - SOMNOLENCE [None]
  - GENERAL PHYSICAL HEALTH DETERIORATION [None]
  - ATRIOVENTRICULAR BLOCK FIRST DEGREE [None]
  - SINUS BRADYCARDIA [None]
  - MALAISE [None]
